FAERS Safety Report 9331858 (Version 1)
Quarter: 2013Q2

REPORT INFORMATION
  Report Type: Spontaneous
  Country: ZA (occurrence: None)
  Receive Date: 20130603
  Receipt Date: 20130603
  Transmission Date: 20140414
  Serious: Yes (Death)
  Sender: FDA-Public Use
  Company Number: AUR-APL-2013-04244

PATIENT
  Age: 55 Year
  Sex: Female

DRUGS (4)
  1. EFAVIRENZ [Suspect]
     Indication: HIV INFECTION
     Dates: start: 201003
  2. LAMIVUDINE [Suspect]
     Dates: start: 201003
  3. STAVUDINE [Suspect]
     Dates: start: 201003
  4. TENOFOVIR [Suspect]
     Dates: start: 2011

REACTIONS (1)
  - Mycosis fungoides [None]
